FAERS Safety Report 5092414-4 (Version None)
Quarter: 2006Q3

REPORT INFORMATION
  Report Type: 
  Country: None (occurrence: None)
  Receive Date: 20060825
  Receipt Date: 20060816
  Transmission Date: 20061208
  Serious: Yes (Other)
  Sender: FDA-Public Use
  Company Number: 2006100286

PATIENT
  Sex: Male

DRUGS (2)
  1. NEURONTIN [Suspect]
     Indication: NEURALGIA
  2. LYRICA [Suspect]
     Indication: NEURALGIA

REACTIONS (6)
  - BRAIN MASS [None]
  - BRAIN NEOPLASM MALIGNANT [None]
  - DRUG INEFFECTIVE [None]
  - HEADACHE [None]
  - SYMPTOM MASKED [None]
  - TRIGEMINAL NEURALGIA [None]
